FAERS Safety Report 18141633 (Version 1)
Quarter: 2020Q3

REPORT INFORMATION
  Report Type: Other
  Country: GB (occurrence: GB)
  Receive Date: 20200812
  Receipt Date: 20200812
  Transmission Date: 20201103
  Serious: Yes (Disabling, Other)
  Sender: FDA-Public Use
  Company Number: GB-GLENMARK PHARMACEUTICALS-2020GMK049034

PATIENT

DRUGS (3)
  1. BETAMETHASONE VALERATE. [Suspect]
     Active Substance: BETAMETHASONE VALERATE
     Indication: ECZEMA
     Dosage: 1 DOSAGE FORM, QD (AS REPORTED, APPLIED FINGERTIP UNITS ONCE TO THE FACE EVERY DAY FOR TWO WEEKS)
     Route: 061
     Dates: start: 20200218, end: 20200303
  2. MERCILON [Concomitant]
     Active Substance: DESOGESTREL\ETHINYL ESTRADIOL
     Indication: PRODUCT USED FOR UNKNOWN INDICATION
     Dosage: UNK
     Route: 065
  3. MOMETASONE FUROATE. [Suspect]
     Active Substance: MOMETASONE FUROATE
     Indication: ECZEMA
     Dosage: 2 DOSAGE FORM, QD (AS REPORTED, TWICE A DAY ? FULL BODY FOR TWO WEEKS)
     Route: 061
     Dates: start: 20200218, end: 20200303

REACTIONS (8)
  - Dermatitis [Not Recovered/Not Resolved]
  - Skin discharge [Not Recovered/Not Resolved]
  - Oedema [Not Recovered/Not Resolved]
  - Steroid withdrawal syndrome [Not Recovered/Not Resolved]
  - Hyperhidrosis [Not Recovered/Not Resolved]
  - Skin burning sensation [Not Recovered/Not Resolved]
  - Erythema [Not Recovered/Not Resolved]
  - Chills [Not Recovered/Not Resolved]

NARRATIVE: CASE EVENT DATE: 20200310
